FAERS Safety Report 25468914 (Version 1)
Quarter: 2025Q2

REPORT INFORMATION
  Report Type: Spontaneous
  Country: US (occurrence: None)
  Receive Date: 20250623
  Receipt Date: 20250623
  Transmission Date: 20250717
  Serious: Yes (Hospitalization)
  Sender: FDA-CTU
  Company Number: None

PATIENT
  Age: 17 Year
  Sex: Male
  Weight: 82.6 kg

DRUGS (6)
  1. FLUCONAZOLE [Suspect]
     Active Substance: FLUCONAZOLE
     Indication: Candida infection
     Dosage: FREQUENCY : DAILY;?
     Route: 048
  2. ESCITALOPRAM [Suspect]
     Active Substance: ESCITALOPRAM OXALATE
     Indication: Depression
     Dosage: FREQUENCY : DAILY;?
     Route: 048
  3. Clonidine 0.1 mg PO daily [Concomitant]
     Dosage: FREQUENCY : DAILY;?
     Route: 048
  4. Levocetirizine 5 mg PO daily [Concomitant]
     Dosage: FREQUENCY : DAILY;?
     Route: 048
     Dates: start: 20240705
  5. Methylphenidate 54 mg PO daily [Concomitant]
     Dosage: FREQUENCY : DAILY;?
     Route: 048
     Dates: start: 20250502
  6. CEPHALEXIN [Suspect]
     Active Substance: CEPHALEXIN

REACTIONS (18)
  - Confusional state [None]
  - Amnesia [None]
  - Dizziness [None]
  - Visual impairment [None]
  - Headache [None]
  - Insomnia [None]
  - Loss of consciousness [None]
  - Blindness [None]
  - Vision blurred [None]
  - Diplopia [None]
  - Oral disorder [None]
  - Lip swelling [None]
  - Dyskinesia [None]
  - Pain in jaw [None]
  - Neck pain [None]
  - Hypophagia [None]
  - Dysuria [None]
  - Therapy interrupted [None]

NARRATIVE: CASE EVENT DATE: 20250620
